FAERS Safety Report 4586776-1 (Version None)
Quarter: 2005Q1

REPORT INFORMATION
  Report Type: 
  Country: None (occurrence: None)
  Receive Date: 20050217
  Receipt Date: 20050217
  Transmission Date: 20050727
  Serious: Yes (Hospitalization)
  Sender: FDA-Public Use
  Company Number: None

PATIENT
  Age: 51 Year
  Sex: Female
  Weight: 59.4212 kg

DRUGS (11)
  1. ACTONEL [Suspect]
     Indication: OSTEOPOROSIS
     Dosage: 1 TAB PO   Q WEEK   ORAL
     Route: 048
     Dates: start: 20050129, end: 20050129
  2. ALBUTEROL [Concomitant]
  3. IMODIUM [Concomitant]
  4. VIOKASE [Concomitant]
  5. SYNTHROID [Concomitant]
  6. BECONASE [Concomitant]
  7. ABREVA [Concomitant]
  8. CLONAZEPAM [Concomitant]
  9. VITAMINS [Concomitant]
  10. CALCIUM GLUCONATE [Concomitant]
  11. COMPAZINE [Concomitant]

REACTIONS (6)
  - BACK PAIN [None]
  - BODY TEMPERATURE INCREASED [None]
  - DIARRHOEA [None]
  - DIZZINESS [None]
  - MOVEMENT DISORDER [None]
  - PAIN [None]
